FAERS Safety Report 5427785-X (Version None)
Quarter: 2007Q3

REPORT INFORMATION
  Report Type: 
  Country: None (occurrence: None)
  Receive Date: 20070828
  Receipt Date: 20070821
  Transmission Date: 20080115
  Serious: Yes (Hospitalization)
  Sender: FDA-Public Use
  Company Number: US-ELI_LILLY_AND_COMPANY-US200708004485

PATIENT
  Sex: Male

DRUGS (2)
  1. HUMALOG [Suspect]
  2. NOVOLIN 50/50 [Concomitant]

REACTIONS (1)
  - HOSPITALISATION [None]
